FAERS Safety Report 8406010-1 (Version None)
Quarter: 2012Q2

REPORT INFORMATION
  Report Type: 
  Country: None (occurrence: None)
  Receive Date: 20120529
  Receipt Date: 20000127
  Transmission Date: 20120825
  Serious: Yes (Life-Threatening, Hospitalization, Other)
  Sender: FDA-Public Use
  Company Number: 02100-JPN-00-0004

PATIENT
  Age: 76 Year
  Sex: Male
  Weight: 52.4 kg

DRUGS (13)
  1. ROCEPHIN [Concomitant]
  2. PLETAL [Suspect]
     Indication: ARTERIAL OCCLUSIVE DISEASE
     Dosage: 100 MG, BID, ORAL
     Route: 048
     Dates: start: 19991212, end: 20000126
  3. ASPENON (APRINDINE HYDROCHLORIDE) CAPSULE) [Suspect]
     Indication: ATRIAL FIBRILLATION
     Dosage: 20 MG, TID, ORAL
     Route: 048
     Dates: start: 19991214, end: 20000126
  4. CARVEDILOL [Concomitant]
  5. ALDACTONE [Concomitant]
  6. LASIX [Concomitant]
  7. DIGOXIN [Concomitant]
  8. BASEN (VOGLIBOSE) [Concomitant]
  9. PRAVASTATIN [Concomitant]
  10. BUFFERIN (ACETYLSALICYLIC ACID, MAGNESIUM CARBONATE, ALUMINIUM GLUCINA [Concomitant]
  11. BENAZEPRIL HYDROCHLORIDE [Suspect]
     Indication: HYPERTENSION
     Dosage: 5 MG, BID, ORAL
     Route: 048
     Dates: start: 19991212, end: 20000126
  12. MUOSTA (REBAMIPIDE) [Concomitant]
  13. METILON (METAMIZOLE SODIUM) [Concomitant]

REACTIONS (8)
  - PNEUMONIA [None]
  - CARDIAC FAILURE ACUTE [None]
  - MELAENA [None]
  - AGRANULOCYTOSIS [None]
  - CONDITION AGGRAVATED [None]
  - ATRIAL FIBRILLATION [None]
  - VENTRICULAR TACHYCARDIA [None]
  - CARDIO-RESPIRATORY ARREST [None]
